FAERS Safety Report 7748980-0 (Version None)
Quarter: 2011Q3

REPORT INFORMATION
  Report Type: 
  Country: None (occurrence: None)
  Receive Date: 20110914
  Receipt Date: 20100827
  Transmission Date: 20111222
  Serious: No
  Sender: FDA-Public Use
  Company Number: US-MYLANLABS-2010S1015736

PATIENT
  Age: 66 Year
  Sex: Female

DRUGS (4)
  1. CIPROFLOXACIN [Concomitant]
     Indication: INFECTION
  2. NITROFURANTOIN [Suspect]
     Indication: PROPHYLAXIS
     Dates: start: 20100611, end: 20100618
  3. NITROFURANTOIN [Suspect]
     Dates: start: 20100618
  4. NITROFURANTOIN MONOHYDRATE/MACROCRYSTALS [Concomitant]
     Indication: URINARY TRACT INFECTION
     Dates: start: 20100601, end: 20100610

REACTIONS (4)
  - BLADDER SPASM [None]
  - URINARY TRACT INFECTION [None]
  - URETHRAL SPASM [None]
  - DRUG EFFECT DECREASED [None]
